FAERS Safety Report 10643314 (Version 1)
Quarter: 2014Q4

REPORT INFORMATION
  Report Type: Spontaneous
  Country: US (occurrence: None)
  Receive Date: 20141128
  Receipt Date: 20141128
  Transmission Date: 20150529
  Serious: Yes (Other)
  Sender: FDA-Public Use
  Company Number: PHEH2014US006630

PATIENT
  Age: 73 Year
  Sex: Male

DRUGS (10)
  1. MAGNESIUM (MAGNESIUM) [Concomitant]
     Active Substance: MAGNESIUM
  2. TEKTURNA [Suspect]
     Active Substance: ALISKIREN HEMIFUMARATE
  3. MULTI-VIT (VITAMINS NOS) [Concomitant]
     Active Substance: VITAMINS
  4. NEXIAM (ESOMEPRAZOLE) [Concomitant]
  5. VITAMIN D (ERGOCALCIFEROL) [Concomitant]
     Active Substance: ERGOCALCIFEROL
  6. FLAXSEED OIL (LINUM USITATISSIMUM SEED OIL) [Concomitant]
  7. TURMERIC (CURCUMA LONGA RHIZOME) [Concomitant]
  8. COQ10 (UBIDECARENONE) [Concomitant]
     Active Substance: UBIDECARENONE
  9. FISH OIL (FISH OIL) [Concomitant]
     Active Substance: FISH OIL
  10. ASPIRIN (ACETYLSALICYLIC ACID) [Concomitant]
     Active Substance: ASPIRIN

REACTIONS (3)
  - Blood pressure increased [None]
  - Drug ineffective [None]
  - Headache [None]

NARRATIVE: CASE EVENT DATE: 20140331
